FAERS Safety Report 5507278-1 (Version None)
Quarter: 2007Q4

REPORT INFORMATION
  Report Type: 
  Country: None (occurrence: None)
  Receive Date: 20071106
  Receipt Date: 20071026
  Transmission Date: 20080405
  Serious: Yes (Hospitalization)
  Sender: FDA-Public Use
  Company Number: PHHO2007AU18016

PATIENT
  Age: 57 Year
  Sex: Male

DRUGS (4)
  1. MYCOPHENOLIC ACID [Suspect]
     Indication: RENAL TRANSPLANT
     Dosage: 1040 MG, BID
     Route: 048
     Dates: start: 20070916
  2. SIMULECT [Concomitant]
  3. NEORAL [Concomitant]
  4. PREDNISOLONE [Concomitant]

REACTIONS (3)
  - ANGINA UNSTABLE [None]
  - ATRIAL FIBRILLATION [None]
  - TROPONIN INCREASED [None]
